FAERS Safety Report 9002645 (Version 2)
Quarter: 2013Q1

REPORT INFORMATION
  Report Type: Spontaneous
  Country: BR (occurrence: None)
  Receive Date: 20121226
  Receipt Date: 20130118
  Transmission Date: 20140127
  Serious: Yes (Death, Other)
  Sender: FDA-Public Use
  Company Number: BR-1195863

PATIENT
  Age: 91 Year
  Sex: Female

DRUGS (2)
  1. TRAVATAN Z [Suspect]
     Indication: GLAUCOMA
     Route: 047
     Dates: start: 2002, end: 20120719
  2. ZYPREXA [Concomitant]

REACTIONS (1)
  - Multi-organ failure [None]
